FAERS Safety Report 4273702-8 (Version None)
Quarter: 2004Q1

REPORT INFORMATION
  Report Type: 
  Country: None (occurrence: None)
  Receive Date: 20040119
  Receipt Date: 20040109
  Transmission Date: 20041129
  Serious: Yes (Death, Hospitalization)
  Sender: FDA-Public Use
  Company Number: CH-ROCHE-355637

PATIENT
  Age: 80 Year
  Sex: Female
  Weight: 63 kg

DRUGS (2)
  1. XELODA [Suspect]
     Route: 048
     Dates: start: 20031117, end: 20031130
  2. BRIVEX [Suspect]
     Indication: HERPES ZOSTER
     Route: 048
     Dates: start: 20031117, end: 20031128

REACTIONS (10)
  - COMA [None]
  - DIARRHOEA [None]
  - HYPOTENSION [None]
  - LEUKOPENIA [None]
  - RENAL IMPAIRMENT [None]
  - SHOCK [None]
  - STEVENS-JOHNSON SYNDROME [None]
  - TACHYCARDIA [None]
  - THROMBOCYTOPENIA [None]
  - VOMITING [None]
